FAERS Safety Report 10965900 (Version 2)
Quarter: 2015Q2

REPORT INFORMATION
  Report Type: Spontaneous
  Country: US (occurrence: US)
  Receive Date: 20150330
  Receipt Date: 20150403
  Transmission Date: 20150821
  Serious: Yes (Other)
  Sender: FDA-Public Use
  Company Number: US-ABBVIE-15K-163-1364957-00

PATIENT
  Age: 60 Year
  Sex: Female
  Weight: 81.72 kg

DRUGS (7)
  1. HUMIRA [Suspect]
     Active Substance: ADALIMUMAB
     Indication: RHEUMATOID ARTHRITIS
     Route: 058
     Dates: start: 2012
  2. VOLTAREN [Concomitant]
     Active Substance: DICLOFENAC SODIUM
     Indication: RHEUMATOID ARTHRITIS
  3. LIDODERM [Concomitant]
     Active Substance: LIDOCAINE
     Indication: RHEUMATOID ARTHRITIS
     Route: 061
  4. PREDNISONE. [Suspect]
     Active Substance: PREDNISONE
     Indication: JOINT SWELLING
     Dosage: TAPER SCHEDULE
     Route: 065
     Dates: start: 20150228, end: 201503
  5. PREDNISONE. [Suspect]
     Active Substance: PREDNISONE
     Indication: MOBILITY DECREASED
  6. HUMIRA [Suspect]
     Active Substance: ADALIMUMAB
     Route: 058
  7. HYDROCODONE [Concomitant]
     Active Substance: HYDROCODONE
     Indication: RHEUMATOID ARTHRITIS

REACTIONS (20)
  - Joint swelling [Not Recovered/Not Resolved]
  - Mobility decreased [Not Recovered/Not Resolved]
  - Diarrhoea [Recovered/Resolved]
  - Abdominal pain upper [Recovered/Resolved]
  - Pyrexia [Recovered/Resolved]
  - Vomiting [Recovered/Resolved]
  - Dysentery [Recovered/Resolved]
  - Cough [Recovered/Resolved]
  - Gallbladder disorder [Not Recovered/Not Resolved]
  - Ultrasound abdomen abnormal [Not Recovered/Not Resolved]
  - Epigastric discomfort [Recovering/Resolving]
  - Immunosuppression [Unknown]
  - Abdominal pain upper [Recovering/Resolving]
  - Chills [Recovered/Resolved]
  - Salmonellosis [Recovered/Resolved]
  - Cardiac infection [Recovered/Resolved]
  - Diarrhoea [Recovered/Resolved]
  - Chest pain [Recovered/Resolved]
  - Poor quality drug administered [Recovered/Resolved]
  - Hepatic cyst [Not Recovered/Not Resolved]

NARRATIVE: CASE EVENT DATE: 201308
